FAERS Safety Report 10869147 (Version 1)
Quarter: 2015Q1

REPORT INFORMATION
  Report Type: Spontaneous
  Country: JP (occurrence: JP)
  Receive Date: 20150225
  Receipt Date: 20150225
  Transmission Date: 20150721
  Serious: Yes (Life-Threatening)
  Sender: FDA-Public Use
  Company Number: PHJP2015JP002142

PATIENT
  Age: 90 Year
  Sex: Female

DRUGS (1)
  1. ULTIBRO INHALATION CAPSULES [Suspect]
     Active Substance: GLYCOPYRRONIUM\INDACATEROL
     Indication: CHRONIC OBSTRUCTIVE PULMONARY DISEASE
     Route: 055

REACTIONS (1)
  - Cardiac arrest [Unknown]
